FAERS Safety Report 4264004-4 (Version None)
Quarter: 2004Q1

REPORT INFORMATION
  Report Type: 
  Country: None (occurrence: None)
  Receive Date: 20040106
  Receipt Date: 20040106
  Transmission Date: 20041129
  Serious: Yes (Death)
  Sender: FDA-Public Use
  Company Number: None

PATIENT
  Age: 54 Year
  Sex: Female
  Weight: 63.6 kg

DRUGS (3)
  1. PACLITAXEL [Suspect]
     Indication: OVARIAN CANCER
     Dosage: 175 MG/M2 IV Q21D
     Route: 042
     Dates: start: 20031217
  2. GEMCITABINE [Suspect]
     Indication: OVARIAN CANCER
     Dosage: ACU 5 IV Q 21D
     Route: 042
     Dates: start: 20031217
  3. CARBOPLATIN [Suspect]
     Indication: OVARIAN CANCER
     Dosage: 800 MG/M2 IV Q 21 D
     Route: 042
     Dates: start: 20031217

REACTIONS (6)
  - ANAEMIA [None]
  - HYPOKALAEMIA [None]
  - HYPOXIA [None]
  - LIVER FUNCTION TEST ABNORMAL [None]
  - PLEURAL EFFUSION [None]
  - PNEUMONIA [None]
